FAERS Safety Report 4783969-5 (Version None)
Quarter: 2005Q3

REPORT INFORMATION
  Report Type: 
  Country: None (occurrence: None)
  Receive Date: 20050927
  Receipt Date: 20050803
  Transmission Date: 20060218
  Serious: No
  Sender: FDA-Public Use
  Company Number: USA0508104534

PATIENT
  Sex: Female

DRUGS (3)
  1. STRATTERA [Suspect]
     Indication: ATTENTION DEFICIT/HYPERACTIVITY DISORDER
     Dosage: 40 MG  DAY
     Dates: start: 20050801
  2. VITAMINS [Concomitant]
  3. THYROID TAB [Concomitant]

REACTIONS (3)
  - CHILLS [None]
  - DECREASED APPETITE [None]
  - DIZZINESS [None]
